FAERS Safety Report 17014158 (Version 4)
Quarter: 2020Q1

REPORT INFORMATION
  Report Type: Spontaneous
  Country: ES (occurrence: ES)
  Receive Date: 20191111
  Receipt Date: 20200101
  Transmission Date: 20200409
  Serious: Yes (Hospitalization, Other)
  Sender: FDA-Public Use
  Company Number: ES-AUROBINDO-AUR-APL-2019-070923

PATIENT
  Age: 51 Year
  Sex: Female

DRUGS (3)
  1. LANTHANUM CARBONATE. [Concomitant]
     Active Substance: LANTHANUM CARBONATE
     Indication: CHRONIC KIDNEY DISEASE-MINERAL AND BONE DISORDER
     Dosage: 3 GRAM, ONCE A DAY
     Route: 065
  2. SEVELAMER [Suspect]
     Active Substance: SEVELAMER
     Indication: CHRONIC KIDNEY DISEASE-MINERAL AND BONE DISORDER
     Dosage: 4.8 GRAM, ONCE A DAY
     Route: 065
  3. SEVELAMER [Suspect]
     Active Substance: SEVELAMER
     Dosage: 4 GRAM, ONCE A DAY
     Route: 065

REACTIONS (15)
  - Anal fissure [Recovered/Resolved]
  - Melaena [Recovered/Resolved]
  - Anaemia [Recovered/Resolved]
  - Asthenia [Recovering/Resolving]
  - Haemorrhoids [Recovered/Resolved]
  - Erosive duodenitis [Recovered/Resolved]
  - Ileal ulcer [Recovered/Resolved]
  - Colitis erosive [Recovered/Resolved]
  - Gastrointestinal injury [Recovering/Resolving]
  - Gastrointestinal bacterial infection [Unknown]
  - Gastritis erosive [Recovered/Resolved]
  - Erosive oesophagitis [Recovered/Resolved]
  - Gastrointestinal erosion [Recovered/Resolved]
  - Haematochezia [Recovered/Resolved]
  - Crystal deposit intestine [Unknown]
